FAERS Safety Report 9723003 (Version 2)
Quarter: 2013Q4

REPORT INFORMATION
  Report Type: Spontaneous
  Country: JP (occurrence: JP)
  Receive Date: 20131202
  Receipt Date: 20131202
  Transmission Date: 20140711
  Serious: Yes (Death, Other)
  Sender: FDA-Public Use
  Company Number: JP-BAYER-2013-080817

PATIENT
  Age: 59 Year
  Sex: Male

DRUGS (1)
  1. STIVARGA [Suspect]
     Indication: COLORECTAL CANCER
     Dosage: 160 MG, QD
     Route: 048
     Dates: start: 20130610, end: 201310

REACTIONS (2)
  - Palmar-plantar erythrodysaesthesia syndrome [None]
  - Colon cancer [Fatal]
